FAERS Safety Report 5301828-6 (Version None)
Quarter: 2007Q2

REPORT INFORMATION
  Report Type: 
  Country: None (occurrence: None)
  Receive Date: 20070419
  Receipt Date: 20070412
  Transmission Date: 20071010
  Serious: Yes (Other)
  Sender: FDA-Public Use
  Company Number: GB-AVENTIS-200713281GDDC

PATIENT

DRUGS (1)
  1. GLIBENCLAMIDE [Suspect]
     Route: 048

REACTIONS (1)
  - CARDIAC FAILURE CONGESTIVE [None]
